FAERS Safety Report 16762104 (Version 7)
Quarter: 2021Q2

REPORT INFORMATION
  Report Type: Spontaneous
  Country: IT (occurrence: IT)
  Receive Date: 20190830
  Receipt Date: 20210503
  Transmission Date: 20210716
  Serious: Yes (Other)
  Sender: FDA-Public Use
  Company Number: PHHY2019IT196671

PATIENT
  Age: 5 Decade
  Sex: Male

DRUGS (8)
  1. STELARA [Suspect]
     Active Substance: USTEKINUMAB
     Indication: PSORIASIS
     Dosage: 45 MG, Q3MO (EVERY 3 MONTHS)
     Route: 058
     Dates: start: 2016, end: 201712
  2. ETANERCEPT [Suspect]
     Active Substance: ETANERCEPT
     Indication: PSORIATIC ARTHROPATHY
     Dosage: 15 MG, WEEKLY
     Route: 058
     Dates: start: 2006, end: 2016
  3. STELARA [Suspect]
     Active Substance: USTEKINUMAB
     Indication: PSORIATIC ARTHROPATHY
     Dosage: 45 MG, QMO
     Route: 058
     Dates: start: 2016, end: 201712
  4. METHOTREXATE. [Suspect]
     Active Substance: METHOTREXATE
     Indication: PSORIATIC ARTHROPATHY
     Dosage: 15 MG, QW
     Route: 065
     Dates: start: 2003
  5. METHOTREXATE. [Suspect]
     Active Substance: METHOTREXATE
     Indication: PSORIASIS
     Dosage: 20 MG, QW (INCREASED)
     Route: 065
     Dates: start: 201801
  6. ETANERCEPT [Suspect]
     Active Substance: ETANERCEPT
     Indication: PSORIASIS
     Dosage: 15 MG, QW
     Route: 058
     Dates: start: 2003, end: 2016
  7. ETANERCEPT [Suspect]
     Active Substance: ETANERCEPT
     Dosage: 45 MG, Q3MO
     Route: 065
     Dates: start: 2016, end: 201712
  8. CICLOSPORIN [Suspect]
     Active Substance: CYCLOSPORINE
     Indication: PSORIATIC ARTHROPATHY
     Dosage: UNK
     Route: 065

REACTIONS (2)
  - Myasthenia gravis [Recovering/Resolving]
  - Hypertension [Unknown]
